FAERS Safety Report 14948550 (Version 2)
Quarter: 2018Q2

REPORT INFORMATION
  Report Type: Spontaneous
  Country: FR (occurrence: FR)
  Receive Date: 20180529
  Receipt Date: 20180604
  Transmission Date: 20180711
  Serious: Yes (Hospitalization)
  Sender: FDA-Public Use
  Company Number: FR-TEVA-2018-FR-899243

PATIENT
  Age: 80 Year
  Sex: Female
  Weight: 60 kg

DRUGS (10)
  1. LEVOTHYROX [Concomitant]
     Active Substance: LEVOTHYROXINE
     Route: 065
  2. IRBESARTAN. [Suspect]
     Active Substance: IRBESARTAN
     Indication: HYPERTENSION
     Route: 048
     Dates: start: 20180214, end: 20180221
  3. LEXOMIL ROCHE [Concomitant]
     Active Substance: BROMAZEPAM
     Route: 065
  4. ALLOPURINOL. [Concomitant]
     Active Substance: ALLOPURINOL
     Route: 065
  5. CERIS [Concomitant]
     Active Substance: TROSPIUM CHLORIDE
     Route: 065
  6. OMEPRAZOLE. [Concomitant]
     Active Substance: OMEPRAZOLE
     Route: 065
  7. FELDENE [Suspect]
     Active Substance: PIROXICAM
     Indication: ARTHROPATHY
     Route: 048
     Dates: start: 201802, end: 20180217
  8. EFFEXOR [Suspect]
     Active Substance: VENLAFAXINE HYDROCHLORIDE
     Indication: DEPRESSION
     Route: 048
  9. VERSATIS [Concomitant]
     Active Substance: LIDOCAINE
     Route: 065
  10. DOLIPRANE [Concomitant]
     Active Substance: ACETAMINOPHEN
     Route: 065

REACTIONS (1)
  - Colitis ischaemic [Recovered/Resolved]

NARRATIVE: CASE EVENT DATE: 20180216
